FAERS Safety Report 7277399 (Version 12)
Quarter: 2012Q4

REPORT INFORMATION
  Report Type: 
  Country: US (occurrence: US)
  Receive Date: 20100212
  Receipt Date: 20120913
  Transmission Date: 20130627
  Serious: Yes (Hospitalization, Disabling, Other)
  Sender: FDA-Public Use
  Company Number: US-009507513-1002USA00784

PATIENT

DRUGS (4)
  1. FOSAMAX [Suspect]
     Indication: OSTEOPOROSIS
     Dosage: UNK
     Route: 048
     Dates: start: 1998, end: 200905
  2. FOSAMAX [Suspect]
     Dosage: 70 mg, QW
     Route: 048
     Dates: start: 20010608, end: 20090321
  3. FOSAMAX [Suspect]
     Dosage: UNK
     Route: 048
     Dates: start: 20090507
  4. CLARITIN-D 12 HOUR [Concomitant]
     Indication: RHINITIS ALLERGIC

REACTIONS (99)
  - Femur fracture [Unknown]
  - Intervertebral disc protrusion [Not Recovered/Not Resolved]
  - Spinal disorder [Not Recovered/Not Resolved]
  - Lumbar vertebral fracture [Unknown]
  - Sinus disorder [Unknown]
  - Adenoidal disorder [Unknown]
  - Exercise test abnormal [Unknown]
  - Appendix disorder [Unknown]
  - Fallopian tube disorder [Unknown]
  - Osteopenia [Unknown]
  - Surgery [Unknown]
  - Spinal fusion surgery [Unknown]
  - Intervertebral disc operation [Unknown]
  - Spinal fusion surgery [Unknown]
  - Gallbladder disorder [Unknown]
  - Anaemia postoperative [Unknown]
  - Phlebolith [Unknown]
  - Myocardial infarction [Unknown]
  - Myocardial infarction [Unknown]
  - Angina unstable [Unknown]
  - Asthma [Unknown]
  - Tonsillar disorder [Unknown]
  - Ventricular dysfunction [Unknown]
  - Lumbar vertebral fracture [Unknown]
  - Left ventricular hypertrophy [Unknown]
  - Fall [Unknown]
  - Neck injury [Unknown]
  - Nephrolithiasis [Unknown]
  - Intervertebral disc protrusion [Recovering/Resolving]
  - Femur fracture [Unknown]
  - Fracture nonunion [Not Recovered/Not Resolved]
  - Chest pain [Unknown]
  - Musculoskeletal chest pain [Unknown]
  - Intervertebral disc protrusion [Unknown]
  - Road traffic accident [Unknown]
  - Hypertension [Unknown]
  - Foot fracture [Recovering/Resolving]
  - Post-traumatic neck syndrome [Unknown]
  - Uterine disorder [Unknown]
  - Intervertebral disc protrusion [Unknown]
  - Bone density decreased [Unknown]
  - Bronchitis [Not Recovered/Not Resolved]
  - Anxiety disorder [Not Recovered/Not Resolved]
  - Dysuria [Unknown]
  - Eye irritation [Unknown]
  - Oral herpes [Unknown]
  - Leukoplakia [Unknown]
  - Oral hairy leukoplakia [Unknown]
  - Anorgasmia [Unknown]
  - Urinary tract infection [Not Recovered/Not Resolved]
  - Epistaxis [Unknown]
  - Skin disorder [Unknown]
  - Oral lichen planus [Unknown]
  - Osteoarthritis [Unknown]
  - Synovial cyst [Unknown]
  - Fibromyalgia [Unknown]
  - Intervertebral disc degeneration [Unknown]
  - Cardiac disorder [Unknown]
  - Intervertebral disc degeneration [Unknown]
  - Muscle atrophy [Unknown]
  - Joint crepitation [Unknown]
  - Haematoma [Unknown]
  - Bone contusion [Unknown]
  - Osteoarthritis [Unknown]
  - Cyst removal [Unknown]
  - Concussion [Unknown]
  - Spinal pain [Unknown]
  - Sexual dysfunction [Unknown]
  - Memory impairment [Unknown]
  - Depression [Unknown]
  - Dermatitis contact [Not Recovered/Not Resolved]
  - Fatigue [Unknown]
  - Skin lesion [Unknown]
  - Obesity [Unknown]
  - Myelitis [Unknown]
  - Osteoporosis [Unknown]
  - Joint effusion [Unknown]
  - Fluid retention [Unknown]
  - Drug intolerance [Unknown]
  - Blood thyroid stimulating hormone decreased [Unknown]
  - Oedema [Unknown]
  - Chest discomfort [Unknown]
  - Coronary artery disease [Unknown]
  - Trichotillomania [Unknown]
  - Blood urine present [Unknown]
  - Corneal abrasion [Unknown]
  - Dry eye [Unknown]
  - White blood cells urine [Unknown]
  - Dyspnoea exertional [Unknown]
  - Headache [Recovered/Resolved]
  - Limb discomfort [Unknown]
  - Limb discomfort [Unknown]
  - Pain in extremity [Unknown]
  - Oedema peripheral [Unknown]
  - Drug hypersensitivity [Unknown]
  - Arthralgia [Unknown]
  - Back pain [Not Recovered/Not Resolved]
  - Arthralgia [Unknown]
  - Pruritus [Unknown]
